FAERS Safety Report 7728056-9 (Version None)
Quarter: 2011Q3

REPORT INFORMATION
  Report Type: 
  Country: None (occurrence: None)
  Receive Date: 20110905
  Receipt Date: 20110827
  Transmission Date: 20111222
  Serious: No
  Sender: FDA-Public Use
  Company Number: US-BIOGENIDEC-2011BI033250

PATIENT
  Sex: Female

DRUGS (1)
  1. TYSABRI [Suspect]
     Indication: MULTIPLE SCLEROSIS
     Route: 042
     Dates: start: 20100707

REACTIONS (1)
  - FATIGUE [None]
